FAERS Safety Report 13778849 (Version 3)
Quarter: 2017Q3

REPORT INFORMATION
  Report Type: Spontaneous
  Country: US (occurrence: US)
  Receive Date: 20170721
  Receipt Date: 20170911
  Transmission Date: 20171127
  Serious: No
  Sender: FDA-Public Use
  Company Number: US-PFIZER INC-2017315988

PATIENT
  Age: 55 Year
  Sex: Female

DRUGS (16)
  1. BUSPIRONE HCL [Concomitant]
     Active Substance: BUSPIRONE HYDROCHLORIDE
     Indication: ANXIETY
     Dosage: 30 MG, 2X/DAY
     Route: 048
     Dates: start: 20141222
  2. LOSARTAN POTASSIUM AND HCTZ [Concomitant]
     Indication: HYPERTENSION
     Dosage: UNK, 1X/DAY[HYDROCHLOROTHIAZIDE:25 MG]\[LOSARTAN POTASSIUM:100 MG](EVERYMORNING)
     Route: 048
     Dates: start: 20131031
  3. AMLODIPINE BESYLATE. [Concomitant]
     Active Substance: AMLODIPINE BESYLATE
     Indication: HYPERTENSION
     Dosage: 1 DF, DAILY
     Route: 048
     Dates: start: 20151111
  4. MEDROXYPROGESTERONE ACETATE. [Concomitant]
     Active Substance: MEDROXYPROGESTERONE ACETATE
     Indication: MENOPAUSE
     Dosage: 2.5 MG, UNK (DAILY AS DIRECTED)
     Route: 048
     Dates: start: 20160831
  5. TRAMADOL HCL [Concomitant]
     Active Substance: TRAMADOL HYDROCHLORIDE
     Indication: ROTATOR CUFF SYNDROME
  6. CARVEDILOL. [Concomitant]
     Active Substance: CARVEDILOL
     Indication: HYPERTENSION
     Dosage: 25 MG, 2X/DAY ( WITH BREAKFAST AND DINNER)
     Route: 048
     Dates: start: 20121101
  7. CHANTIX [Suspect]
     Active Substance: VARENICLINE TARTRATE
     Dosage: UNK
     Route: 048
     Dates: start: 201706, end: 201707
  8. CELEBREX [Concomitant]
     Active Substance: CELECOXIB
     Indication: ARTHRITIS
     Dosage: 200 MG, AS NEEDED (WITH A MEAL)
     Route: 048
     Dates: start: 20140717
  9. TRAMADOL HCL [Concomitant]
     Active Substance: TRAMADOL HYDROCHLORIDE
     Indication: BACK PAIN
     Dosage: 100 MG, AS NEEDED (TAKE 2 TABLETS 2 TIMES DAILY)
     Route: 048
     Dates: start: 20150303
  10. OXYCODONE AND ACETAMINOPHEN [Concomitant]
     Active Substance: ACETAMINOPHEN\OXYCODONE HYDROCHLORIDE
     Indication: PAIN
     Dosage: UNK, AS NEEDED [OXYCODONE: 10 MG]\[ACETAMINOPHEN: 325 MG] (UP TO TWO TIMES DAILY)
     Route: 048
     Dates: start: 20121101
  11. TRAZODONE HYDROCHLORIDE. [Concomitant]
     Active Substance: TRAZODONE HYDROCHLORIDE
     Indication: INSOMNIA
     Dosage: UNK, 1X/DAY  (TAKE 1/3 TO 1 TABLET AT BEDTIME FOR SLEEP)
     Route: 048
     Dates: start: 20170322
  12. CORTISONE [Concomitant]
     Active Substance: CORTISONE\HYDROCORTISONE
  13. CHANTIX [Suspect]
     Active Substance: VARENICLINE TARTRATE
     Indication: SMOKING CESSATION THERAPY
     Dosage: 0.5 MG, DAILY
     Dates: start: 20170401, end: 20170408
  14. VENLAFAXINE HCL [Concomitant]
     Active Substance: VENLAFAXINE HYDROCHLORIDE
     Indication: MAJOR DEPRESSION
     Dosage: 2 DF, DAILY
     Route: 048
     Dates: start: 20140314
  15. CELEBREX [Concomitant]
     Active Substance: CELECOXIB
     Indication: PAIN
  16. PROAIR HFA [Concomitant]
     Active Substance: ALBUTEROL SULFATE
     Indication: COUGH
     Dosage: UNK, AS NEEDED (INHALE 2 PUFFS EVERY 4-6 HOURS)
     Route: 055
     Dates: start: 20160330

REACTIONS (2)
  - Diarrhoea [Recovered/Resolved]
  - Drug intolerance [Recovered/Resolved]

NARRATIVE: CASE EVENT DATE: 20170402
